FAERS Safety Report 7744908-8 (Version None)
Quarter: 2011Q3

REPORT INFORMATION
  Report Type: 
  Country: None (occurrence: None)
  Receive Date: 20110913
  Receipt Date: 20110831
  Transmission Date: 20111222
  Serious: Yes (Hospitalization, Other)
  Sender: FDA-Public Use
  Company Number: US-BIOGENIDEC-2010BI023450

PATIENT
  Age: 71 Year
  Sex: Female

DRUGS (12)
  1. TYSABRI [Suspect]
     Indication: MULTIPLE SCLEROSIS
     Route: 042
     Dates: start: 20080527, end: 20100727
  2. FOSAMAX [Concomitant]
     Indication: OSTEOPOROSIS
     Route: 048
  3. JANUVIA [Concomitant]
  4. ASPIRIN [Concomitant]
  5. MULTI-VITAMIN [Concomitant]
  6. THYROID CAPSULES (NOS) [Concomitant]
  7. AMITRIPTYLINE HCL [Concomitant]
  8. DETROL [Concomitant]
     Route: 048
  9. SYNTHROID [Concomitant]
  10. LANTUS [Concomitant]
     Dosage: DOSE UNIT:40
  11. STOOL SOFTENER (NOS) [Concomitant]
  12. DONEPEZIL HCL [Concomitant]
     Route: 048

REACTIONS (5)
  - PROGRESSIVE MULTIFOCAL LEUKOENCEPHALOPATHY [None]
  - FEELING ABNORMAL [None]
  - FATIGUE [None]
  - URINARY TRACT INFECTION [None]
  - HYPOGLYCAEMIA [None]
